FAERS Safety Report 9797229 (Version 1)
Quarter: 2014Q1

REPORT INFORMATION
  Report Type: Report from Study
  Country: US (occurrence: US)
  Receive Date: 20140106
  Receipt Date: 20140106
  Transmission Date: 20141002
  Serious: Yes (Death)
  Sender: FDA-Public Use
  Company Number: US-ROCHE-1329489

PATIENT
  Age: 60 Year
  Sex: Female

DRUGS (8)
  1. BEVACIZUMAB [Suspect]
     Indication: METASTASIS
     Dosage: 25/APR/2012, 16/MAY/2012, 30/MAY/2012 (MIXED WITH NACL)
     Route: 042
     Dates: start: 20120411
  2. BEVACIZUMAB [Suspect]
     Indication: RETROPERITONEAL CANCER
  3. BEVACIZUMAB [Suspect]
     Indication: UTERINE CANCER
  4. BENDAMUSTINE [Concomitant]
     Dosage: 11/APR/2012
     Route: 042
  5. ACETAMINOPHEN [Concomitant]
     Dosage: AS NEEDED, 16/MAY/2012, 11/APR/2012
     Route: 048
  6. MEPERIDINE [Concomitant]
     Dosage: EVERY 2 HOURS AS NEEDED, 16/MAY/2012, 11/APR/2012
     Route: 042
  7. OXALIPLATIN [Concomitant]
     Route: 065
     Dates: start: 20120402, end: 20120425
  8. NACL .9% [Concomitant]
     Route: 065

REACTIONS (3)
  - Death [Fatal]
  - Nausea [Unknown]
  - Off label use [Unknown]
